FAERS Safety Report 17795383 (Version 1)
Quarter: 2020Q2

REPORT INFORMATION
  Report Type: Spontaneous
  Country: GB (occurrence: GB)
  Receive Date: 20200515
  Receipt Date: 20200515
  Transmission Date: 20200714
  Serious: Yes (Hospitalization, Other)
  Sender: FDA-Public Use
  Company Number: NVSC2020GB133040

PATIENT
  Age: 73 Year
  Sex: Male

DRUGS (2)
  1. FUSIDIC ACID [Interacting]
     Active Substance: FUSIDIC ACID
     Indication: INFECTION
     Dosage: UNK
     Route: 065
     Dates: start: 201806
  2. ATORVASTATIN [Suspect]
     Active Substance: ATORVASTATIN
     Indication: INFECTION
     Dosage: 80 MG
     Route: 065
     Dates: start: 201806

REACTIONS (4)
  - Blood creatine phosphokinase increased [Unknown]
  - Labelled drug-drug interaction medication error [Unknown]
  - Chromaturia [Unknown]
  - Myalgia [Unknown]

NARRATIVE: CASE EVENT DATE: 20180731
